FAERS Safety Report 4335303-2 (Version None)
Quarter: 2004Q2

REPORT INFORMATION
  Report Type: 
  Country: None (occurrence: None)
  Receive Date: 20040408
  Receipt Date: 20040408
  Transmission Date: 20050107
  Serious: Yes (Disabling, Other)
  Sender: FDA-Public Use
  Company Number: None

PATIENT
  Age: 73 Year
  Sex: Female
  Weight: 71.2147 kg

DRUGS (1)
  1. DEPO-MEDROL [Suspect]
     Indication: SCIATICA
     Dosage: ONE INJECT  EPIDURAL
     Route: 008
     Dates: start: 20040109, end: 20040109

REACTIONS (3)
  - HEART RATE INCREASED [None]
  - NAUSEA [None]
  - POSTNASAL DRIP [None]
